FAERS Safety Report 8275824-3 (Version None)
Quarter: 2012Q2

REPORT INFORMATION
  Report Type: 
  Country: None (occurrence: None)
  Receive Date: 20120410
  Receipt Date: 20120410
  Transmission Date: 20120825
  Serious: Yes (Other)
  Sender: FDA-Public Use
  Company Number: None

PATIENT
  Age: 72 Year
  Sex: Female

DRUGS (8)
  1. LASIX [Concomitant]
  2. LEVOTHROID [Concomitant]
  3. PROMACTA [Concomitant]
  4. PROMACTA [Suspect]
     Indication: IDIOPATHIC THROMBOCYTOPENIC PURPURA
     Dosage: 25MG 2 TABS QD ORALLY
     Route: 048
     Dates: start: 20120112, end: 20120301
  5. PRAVACHOL [Concomitant]
  6. TRAZODONE HCL [Concomitant]
  7. LORAZEPAM [Concomitant]
  8. CELEXA [Concomitant]

REACTIONS (4)
  - LIVER FUNCTION TEST ABNORMAL [None]
  - HEPATOTOXICITY [None]
  - WHITE BLOOD CELL COUNT INCREASED [None]
  - PLATELET COUNT DECREASED [None]
